FAERS Safety Report 16593007 (Version 2)
Quarter: 2019Q3

REPORT INFORMATION
  Report Type: Spontaneous
  Country: FR (occurrence: FR)
  Receive Date: 20190718
  Receipt Date: 20190813
  Transmission Date: 20191004
  Serious: Yes (Other)
  Sender: FDA-Public Use
  Company Number: FR-BAUSCH-BL-2019-019964

PATIENT
  Age: 69 Year
  Sex: Male
  Weight: 63 kg

DRUGS (4)
  1. SOLUPRED [PREDNISOLONE] [Suspect]
     Active Substance: PREDNISOLONE
     Indication: IMMUNOSUPPRESSANT DRUG THERAPY
     Route: 065
     Dates: start: 2005
  2. TACROLIMUS. [Suspect]
     Active Substance: TACROLIMUS
     Indication: IMMUNOSUPPRESSANT DRUG THERAPY
     Route: 065
     Dates: start: 2005
  3. EVEROLIMUS. [Suspect]
     Active Substance: EVEROLIMUS
     Indication: IMMUNOSUPPRESSANT DRUG THERAPY
     Route: 065
     Dates: start: 201304
  4. MYCOPHENOLATE MOFETIL. [Suspect]
     Active Substance: MYCOPHENOLATE MOFETIL
     Indication: IMMUNOSUPPRESSANT DRUG THERAPY
     Route: 065
     Dates: start: 2005, end: 201304

REACTIONS (5)
  - Basal cell carcinoma [Unknown]
  - Squamous cell carcinoma [Unknown]
  - Superficial spreading melanoma stage unspecified [Unknown]
  - Acanthoma [Unknown]
  - Bowen^s disease [Unknown]

NARRATIVE: CASE EVENT DATE: 201304
